FAERS Safety Report 8227403-1 (Version None)
Quarter: 2012Q1

REPORT INFORMATION
  Report Type: 
  Country: None (occurrence: None)
  Receive Date: 20120322
  Receipt Date: 20120315
  Transmission Date: 20120608
  Serious: Yes (Hospitalization)
  Sender: FDA-Public Use
  Company Number: FR-TEVA-328491USA

PATIENT
  Sex: Male

DRUGS (2)
  1. TREANDA [Suspect]
     Route: 042
  2. RITUXIMAB [Suspect]

REACTIONS (4)
  - HYPOXIA [None]
  - LUNG DISORDER [None]
  - ASTHENIA [None]
  - WEIGHT DECREASED [None]
